FAERS Safety Report 20450655 (Version 1)
Quarter: 2022Q1

REPORT INFORMATION
  Report Type: Spontaneous
  Country: US (occurrence: US)
  Receive Date: 20220209
  Receipt Date: 20220209
  Transmission Date: 20220423
  Serious: No
  Sender: FDA-Public Use
  Company Number: US-BAYER-2022A020607

PATIENT
  Age: 73 Year
  Sex: Female

DRUGS (1)
  1. MIRALAX [Suspect]
     Active Substance: POLYETHYLENE GLYCOL 3350
     Indication: Constipation
     Dosage: UNK, BID
     Route: 048
     Dates: start: 20220108

REACTIONS (2)
  - Inappropriate schedule of product administration [None]
  - Incorrect product administration duration [None]

NARRATIVE: CASE EVENT DATE: 20220108
